FAERS Safety Report 21776427 (Version 2)
Quarter: 2022Q4

REPORT INFORMATION
  Report Type: Report from Study
  Country: CN (occurrence: None)
  Receive Date: 20221226
  Receipt Date: 20221227
  Transmission Date: 20230113
  Serious: Yes (Hospitalization)
  Sender: FDA-Public Use
  Company Number: CN-ROCHE-3245990

PATIENT
  Sex: Female

DRUGS (9)
  1. MYCOPHENOLATE MOFETIL [Suspect]
     Active Substance: MYCOPHENOLATE MOFETIL
     Indication: Lupus nephritis
     Route: 065
     Dates: start: 20220726
  2. PREDNISONE [Concomitant]
     Active Substance: PREDNISONE
     Dosage: PO, QD
     Route: 048
     Dates: start: 20220727, end: 20220809
  3. PREDNISONE [Concomitant]
     Active Substance: PREDNISONE
     Dosage: PO, QD
     Route: 048
     Dates: start: 20220810, end: 20221027
  4. PREDNISONE [Concomitant]
     Active Substance: PREDNISONE
     Route: 048
     Dates: start: 20221028, end: 20221121
  5. PREDNISONE [Concomitant]
     Active Substance: PREDNISONE
     Dosage: PO, QD
     Route: 048
     Dates: start: 20221122, end: 20221209
  6. PREDNISONE [Concomitant]
     Active Substance: PREDNISONE
     Dosage: TILL NOW
     Route: 048
     Dates: start: 20221210
  7. CALTRATE WITH VITAMIN D [Concomitant]
     Active Substance: CALCIUM CARBONATE\CHOLECALCIFEROL
  8. SULFAMETHOXAZOLE\TRIMETHOPRIM [Concomitant]
     Active Substance: SULFAMETHOXAZOLE\TRIMETHOPRIM
  9. BUJIATAI [Concomitant]

REACTIONS (1)
  - Neutrophil count decreased [Unknown]
